FAERS Safety Report 6905092-3 (Version None)
Quarter: 2010Q3

REPORT INFORMATION
  Report Type: 
  Country: None (occurrence: None)
  Receive Date: 20100804
  Receipt Date: 20090909
  Transmission Date: 20110219
  Serious: No
  Sender: FDA-Public Use
  Company Number: US-PFIZER INC-2009246163

PATIENT
  Sex: Female
  Weight: 63.492 kg

DRUGS (4)
  1. LYRICA [Suspect]
     Dosage: 75 MG, 2X/DAY
     Route: 048
     Dates: start: 20090709
  2. NEURONTIN [Suspect]
     Dosage: 300 MG, 1X/DAY
     Route: 048
  3. WELLBUTRIN [Concomitant]
     Indication: DEPRESSION
     Dosage: 150MG IN THE MORNING AND 100MG IN THE NIGHT
     Route: 048
  4. LEXAPRO [Concomitant]
     Indication: DEPRESSION
     Dosage: 100 MG, 1X/DAY
     Route: 048

REACTIONS (2)
  - CONDITION AGGRAVATED [None]
  - SOMNOLENCE [None]
